FAERS Safety Report 9099390 (Version 2)
Quarter: 2013Q1

REPORT INFORMATION
  Report Type: Spontaneous
  Country: FR (occurrence: FR)
  Receive Date: 20130214
  Receipt Date: 20130310
  Transmission Date: 20140127
  Serious: Yes (Hospitalization)
  Sender: FDA-Public Use
  Company Number: FR-BRISTOL-MYERS SQUIBB COMPANY-17362732

PATIENT
  Age: 83 Year
  Sex: Female

DRUGS (7)
  1. COUMADINE [Suspect]
     Indication: ATRIAL FIBRILLATION
     Route: 048
     Dates: start: 2009
  2. LEVOTHYROX [Concomitant]
  3. VERAPAMIL [Concomitant]
  4. ESIDREX [Concomitant]
  5. KALEORID [Concomitant]
  6. BRICANYL [Concomitant]
  7. ATROVENT [Concomitant]

REACTIONS (2)
  - Epistaxis [Recovered/Resolved]
  - Haemoglobin decreased [Recovered/Resolved]
